FAERS Safety Report 21203678 (Version 4)
Quarter: 2023Q4

REPORT INFORMATION
  Report Type: Spontaneous
  Country: JP (occurrence: JP)
  Receive Date: 20220811
  Receipt Date: 20231202
  Transmission Date: 20240110
  Serious: Yes (Death, Other)
  Sender: FDA-Public Use
  Company Number: JP-JAZZ-2022-JP-026367

PATIENT
  Age: 65 Year
  Sex: Female
  Weight: 59.9 kg

DRUGS (2)
  1. DEFITELIO [Suspect]
     Active Substance: DEFIBROTIDE SODIUM
     Indication: Venoocclusive liver disease
     Dosage: 25 MILLIGRAM/KILOGRAM, QD
     Route: 042
     Dates: start: 20220719, end: 20220728
  2. PREDNISOLONE [Concomitant]
     Active Substance: PREDNISOLONE
     Indication: Product used for unknown indication
     Dosage: 1 MILLIGRAM/KILOGRAM
     Dates: start: 202207, end: 202207

REACTIONS (3)
  - Multiple organ dysfunction syndrome [Fatal]
  - Infection [Fatal]
  - Venoocclusive liver disease [Fatal]

NARRATIVE: CASE EVENT DATE: 20220701
